FAERS Safety Report 4673866-8 (Version None)
Quarter: 2005Q2

REPORT INFORMATION
  Report Type: 
  Country: None (occurrence: None)
  Receive Date: 20050525
  Receipt Date: 20050510
  Transmission Date: 20051028
  Serious: Yes (Life-Threatening, Hospitalization)
  Sender: FDA-Public Use
  Company Number: JP-MERCK-0505USA01529

PATIENT
  Age: 82 Year
  Sex: Female
  Weight: 52 kg

DRUGS (5)
  1. EUGLUCON [Suspect]
     Indication: DIABETES MELLITUS
     Route: 048
     Dates: start: 20040302, end: 20050421
  2. LIPITOR [Concomitant]
     Indication: HYPERLIPIDAEMIA
     Route: 048
     Dates: start: 20040302
  3. COZAAR [Suspect]
     Indication: HYPERTENSION
     Route: 048
     Dates: start: 20040925, end: 20050428
  4. NORVASC [Concomitant]
     Indication: HYPERTENSION
     Route: 048
     Dates: start: 20040302
  5. SULPIRIDE [Concomitant]
     Indication: DEPRESSION
     Route: 048
     Dates: start: 20040925

REACTIONS (2)
  - HYPOGLYCAEMIA [None]
  - LOSS OF CONSCIOUSNESS [None]
